FAERS Safety Report 8419812-2 (Version None)
Quarter: 2012Q2

REPORT INFORMATION
  Report Type: 
  Country: None (occurrence: None)
  Receive Date: 20120607
  Receipt Date: 20120601
  Transmission Date: 20120825
  Serious: Yes (Other)
  Sender: FDA-Public Use
  Company Number: PHHY2012JP048192

PATIENT
  Sex: Female

DRUGS (9)
  1. MAGNESIUM OXIDE [Concomitant]
     Dosage: 990 MG, DAILY
     Route: 048
  2. MECOBALAMIN [Concomitant]
     Dosage: 1500 UG, DAILY
  3. CLONAZEPAM [Concomitant]
     Dosage: 0.5 MG, DAILY
     Route: 048
  4. RANITIDINE [Concomitant]
     Dosage: 300 MG, DAILY
     Route: 048
  5. SOLIFENACIN SUCCINATE [Concomitant]
     Dosage: 5 MG, DAILY
     Route: 048
  6. MENATETRENONE [Concomitant]
     Dosage: 45 MG, DAILY
     Route: 048
  7. VERAPAMIL [Suspect]
     Dosage: 120 MG, DAILY
     Dates: start: 20120530
  8. GILENYA [Suspect]
     Indication: RELAPSING-REMITTING MULTIPLE SCLEROSIS
     Dosage: 0.5 MG, DAILY
     Route: 048
     Dates: start: 20120530
  9. PRAVASTATIN [Concomitant]
     Indication: HYPERLIPIDAEMIA
     Dosage: 10 MG, DAILY
     Route: 048

REACTIONS (4)
  - HYPERTENSION [None]
  - ELECTROCARDIOGRAM LOW VOLTAGE [None]
  - ELECTROCARDIOGRAM CHANGE [None]
  - BRADYCARDIA [None]
